FAERS Safety Report 10004592 (Version 1)
Quarter: 2014Q1

REPORT INFORMATION
  Report Type: Spontaneous
  Country: JP (occurrence: JP)
  Receive Date: 20140312
  Receipt Date: 20140312
  Transmission Date: 20141002
  Serious: Yes (Other)
  Sender: FDA-Public Use
  Company Number: PHHY2014JP028790

PATIENT
  Age: 75 Year
  Sex: Male

DRUGS (3)
  1. CISPLATIN [Suspect]
     Indication: ADENOCARCINOMA
     Route: 042
     Dates: start: 201204
  2. 5-FLUOROURACIL [Suspect]
     Indication: ADENOCARCINOMA
     Route: 042
     Dates: start: 201204
  3. CETUXIMAB [Suspect]
     Indication: ADENOCARCINOMA

REACTIONS (4)
  - Electrolyte imbalance [Unknown]
  - Neutropenia [Unknown]
  - Dermatitis acneiform [Unknown]
  - Decreased appetite [Unknown]
